FAERS Safety Report 15902133 (Version 1)
Quarter: 2019Q1

REPORT INFORMATION
  Report Type: Report from Study
  Country: US (occurrence: US)
  Receive Date: 20190201
  Receipt Date: 20190201
  Transmission Date: 20190417
  Serious: Yes (Other)
  Sender: FDA-Public Use
  Company Number: US-GILEAD-2019-0387965

PATIENT
  Age: 75 Year
  Sex: Male

DRUGS (1)
  1. IDELALISIB [Suspect]
     Active Substance: IDELALISIB
     Indication: CHRONIC LYMPHOCYTIC LEUKAEMIA
     Dosage: 150 MG, BID
     Route: 065
     Dates: start: 201812

REACTIONS (7)
  - Arthritis [Not Recovered/Not Resolved]
  - Oesophageal ulcer [Not Recovered/Not Resolved]
  - Irritability [Not Recovered/Not Resolved]
  - Diarrhoea [Not Recovered/Not Resolved]
  - Weight decreased [Not Recovered/Not Resolved]
  - Muscle spasms [Not Recovered/Not Resolved]
  - Osteoporosis [Not Recovered/Not Resolved]
